FAERS Safety Report 18365858 (Version 1)
Quarter: 2020Q4

REPORT INFORMATION
  Report Type: Spontaneous
  Country: US (occurrence: US)
  Receive Date: 20201009
  Receipt Date: 20201009
  Transmission Date: 20210114
  Serious: No
  Sender: FDA-Public Use
  Company Number: None

PATIENT
  Age: 74 Year
  Sex: Female
  Weight: 97.52 kg

DRUGS (2)
  1. COSENTYX [Suspect]
     Active Substance: SECUKINUMAB
     Indication: PSORIASIS
     Dosage: INJECT 300MG (2 PEN)S SUBCUTANEOUSLY ONCE A WEEK FOR 5  WEEKS AS DIRECTED
     Route: 058
     Dates: start: 202009
  2. COSENTYX [Suspect]
     Active Substance: SECUKINUMAB
     Indication: PSORIATIC ARTHROPATHY
     Dosage: INJECT 300MG (2 PEN)S SUBCUTANEOUSLY ONCE A WEEK FOR 5  WEEKS AS DIRECTED
     Route: 058
     Dates: start: 202009

REACTIONS (2)
  - Upper respiratory tract infection [None]
  - Headache [None]
